FAERS Safety Report 6826902-4 (Version None)
Quarter: 2010Q3

REPORT INFORMATION
  Report Type: 
  Country: None (occurrence: None)
  Receive Date: 20100709
  Receipt Date: 20100629
  Transmission Date: 20110219
  Serious: Yes (Other)
  Sender: FDA-Public Use
  Company Number: ES-ELI_LILLY_AND_COMPANY-ES201006007400

PATIENT
  Age: 70 Year
  Sex: Male

DRUGS (1)
  1. FORTEO [Suspect]

REACTIONS (2)
  - GASTRECTOMY [None]
  - WEIGHT INCREASED [None]
